FAERS Safety Report 20853926 (Version 1)
Quarter: 2022Q2

REPORT INFORMATION
  Report Type: Spontaneous
  Country: IT (occurrence: IT)
  Receive Date: 20220520
  Receipt Date: 20220520
  Transmission Date: 20220721
  Serious: Yes (Death, Hospitalization)
  Sender: FDA-Public Use
  Company Number: IT-PFIZER INC-2014270456

PATIENT
  Age: 73 Year
  Sex: Male

DRUGS (9)
  1. OXALIPLATIN [Suspect]
     Active Substance: OXALIPLATIN
     Indication: Colon cancer metastatic
     Dosage: 12 CYCLES
  2. OXALIPLATIN [Suspect]
     Active Substance: OXALIPLATIN
     Dosage: CYCLIC
     Dates: start: 201211
  3. FLUOROURACIL [Concomitant]
     Active Substance: FLUOROURACIL
     Indication: Adenocarcinoma of colon
     Dosage: 12 CYCLES
  4. FLUOROURACIL [Concomitant]
     Active Substance: FLUOROURACIL
     Indication: Colon cancer metastatic
     Dosage: UNK
     Dates: start: 2012
  5. LEUCOVORIN [Concomitant]
     Active Substance: LEUCOVORIN
     Indication: Adenocarcinoma of colon
     Dosage: 12 CYCLES
  6. LEUCOVORIN [Concomitant]
     Active Substance: LEUCOVORIN
     Indication: Colon cancer metastatic
     Dosage: UNK
     Dates: start: 2012
  7. LEUCOVORIN [Concomitant]
     Active Substance: LEUCOVORIN
     Dosage: CYCLIC
     Dates: start: 201211
  8. IRINOTECAN [Concomitant]
     Active Substance: IRINOTECAN
     Indication: Colon cancer metastatic
     Dosage: UNK
     Dates: start: 2012
  9. CAPECITABINE [Concomitant]
     Active Substance: CAPECITABINE
     Indication: Colon cancer metastatic
     Dosage: CYCLIC
     Dates: start: 201211

REACTIONS (1)
  - Thrombotic thrombocytopenic purpura [Fatal]
